FAERS Safety Report 5164906-0 (Version None)
Quarter: 2006Q4

REPORT INFORMATION
  Report Type: 
  Country: None (occurrence: None)
  Receive Date: 20061124
  Receipt Date: 20061116
  Transmission Date: 20070319
  Serious: Yes (Hospitalization)
  Sender: FDA-Public Use
  Company Number: 2006-05855

PATIENT
  Age: 58 Year
  Sex: Female

DRUGS (4)
  1. ANDRODERM [Suspect]
     Indication: ORGANIC ERECTILE DYSFUNCTION
     Dosage: 10 MG, X 1 DAY, TRANSDERMAL
     Route: 062
     Dates: start: 20060729, end: 20060729
  2. LEVITRA [Suspect]
     Indication: ORGANIC ERECTILE DYSFUNCTION
     Dosage: 10 MG, X 1 DAY, ORAL
     Route: 048
     Dates: start: 20060730, end: 20060730
  3. NITROGLYCERIN SLOVAKOFARMA (GLYCERYL TRINITRATE) [Concomitant]
  4. ASPIRIN [Concomitant]

REACTIONS (1)
  - LYMPHANGITIS [None]
